FAERS Safety Report 17200551 (Version 2)
Quarter: 2024Q2

REPORT INFORMATION
  Report Type: Spontaneous
  Country: US (occurrence: US)
  Receive Date: 20191226
  Receipt Date: 20240424
  Transmission Date: 20240717
  Serious: Yes (Life-Threatening, Hospitalization, Other)
  Sender: FDA-Public Use
  Company Number: None

PATIENT
  Age: 76 Year
  Sex: Male

DRUGS (2)
  1. MYCOPHENOLATE MOFETIL [Suspect]
     Active Substance: MYCOPHENOLATE MOFETIL
     Indication: Encephalitis autoimmune
     Dosage: UNK
     Route: 042
  2. IMMUNOGLOBULINS [Concomitant]
     Indication: Encephalitis autoimmune
     Dosage: UNK (INTRAVENOUS IMMUNOGLOBULIN (IVIG) THERAPY)
     Route: 042

REACTIONS (3)
  - Encephalitis autoimmune [Unknown]
  - Hyponatraemia [Unknown]
  - Condition aggravated [Unknown]
